FAERS Safety Report 17338011 (Version 1)
Quarter: 2020Q1

REPORT INFORMATION
  Report Type: Spontaneous
  Country: US (occurrence: US)
  Receive Date: 20200129
  Receipt Date: 20200129
  Transmission Date: 20200409
  Serious: No
  Sender: FDA-Public Use
  Company Number: US-ASTRAZENECA-2020SE03277

PATIENT
  Sex: Female
  Weight: 89.8 kg

DRUGS (4)
  1. BYDUREON [Suspect]
     Active Substance: EXENATIDE
     Indication: DIABETES MELLITUS
     Route: 065
     Dates: start: 20160824
  2. JARVIANVE [Concomitant]
     Indication: DIABETES MELLITUS
  3. JARVIANVE [Concomitant]
     Indication: CARDIAC DISORDER
  4. TRESIBA [Concomitant]
     Active Substance: INSULIN DEGLUDEC
     Indication: DIABETES MELLITUS
     Dosage: 30USP UNITS AT NIGHT

REACTIONS (5)
  - Injection site haemorrhage [Unknown]
  - Wrong technique in product usage process [Unknown]
  - Diabetes mellitus inadequate control [Unknown]
  - Device malfunction [Unknown]
  - Product dose omission [Unknown]
